FAERS Safety Report 9968595 (Version 1)
Quarter: 2014Q1

REPORT INFORMATION
  Report Type: Report from Study
  Country: US (occurrence: US)
  Receive Date: 20140306
  Receipt Date: 20140306
  Transmission Date: 20141002
  Serious: No
  Sender: FDA-Public Use
  Company Number: US-ABBVIE-13P-163-1143178-00

PATIENT
  Age: 66 Year
  Sex: Female
  Weight: 81.72 kg

DRUGS (16)
  1. HUMIRA [Suspect]
     Indication: PSORIASIS
     Dates: start: 20130802
  2. HUMIRA [Suspect]
     Indication: PSORIATIC ARTHROPATHY
  3. ATENOLOL [Concomitant]
     Indication: HYPERTENSION
  4. PROZAC [Concomitant]
     Indication: DEPRESSION
  5. HCTZ [Concomitant]
     Indication: FLUID RETENTION
  6. SIMVASTATIN [Concomitant]
     Indication: BLOOD CHOLESTEROL INCREASED
  7. GLYPIZIDE [Concomitant]
     Indication: DIABETES MELLITUS
  8. JANUVIA [Concomitant]
     Indication: DIABETES MELLITUS
  9. VESICARE [Concomitant]
     Indication: POLLAKIURIA
  10. NEXIUM [Concomitant]
     Indication: GASTROOESOPHAGEAL REFLUX DISEASE
  11. ASPIRIN [Concomitant]
     Indication: CARDIOVASCULAR EVENT PROPHYLAXIS
  12. CALCIUM [Concomitant]
     Indication: MINERAL SUPPLEMENTATION
  13. VITAMIN D [Concomitant]
     Indication: VITAMIN SUPPLEMENTATION
  14. SPIRIVA [Concomitant]
     Indication: ASTHMA
  15. ARCAPTA [Concomitant]
     Indication: ASTHMA
  16. PROVENTIL [Concomitant]
     Indication: ASTHMA

REACTIONS (1)
  - Psoriasis [Not Recovered/Not Resolved]
